FAERS Safety Report 17362194 (Version 1)
Quarter: 2020Q1

REPORT INFORMATION
  Report Type: Spontaneous
  Country: US (occurrence: US)
  Receive Date: 20200201
  Receipt Date: 20200201
  Transmission Date: 20200409
  Serious: No
  Sender: FDA-Public Use
  Company Number: None

PATIENT
  Age: 59 Year
  Sex: Female
  Weight: 67.5 kg

DRUGS (10)
  1. CALCIUM 1200MG [Concomitant]
  2. INCRUSE ELLIPTA [Suspect]
     Active Substance: UMECLIDINIUM BROMIDE
     Indication: BRONCHITIS CHRONIC
     Dosage: ?          OTHER STRENGTH:MCG;QUANTITY:1 PUFF(S);?
     Route: 048
     Dates: start: 20191201, end: 20191215
  3. SPIRIVA RESPIMAT [Concomitant]
     Active Substance: TIOTROPIUM BROMIDE
  4. POTASSIUM 1000MG [Concomitant]
  5. MAGNESIUM 600 MG [Concomitant]
  6. VITAMIN B12 [Concomitant]
     Active Substance: CYANOCOBALAMIN
  7. ASPIRIN. [Concomitant]
     Active Substance: ASPIRIN
  8. ARMOUR THYROID [Concomitant]
     Active Substance: THYROID, PORCINE
  9. MONTELUCAST [Concomitant]
     Active Substance: MONTELUKAST SODIUM
  10. VITAMIN D 10,000UNITS [Concomitant]

REACTIONS (6)
  - Insurance issue [None]
  - Oral discomfort [None]
  - Choking [None]
  - Throat irritation [None]
  - Cough [None]
  - Dysgeusia [None]

NARRATIVE: CASE EVENT DATE: 20191215
